FAERS Safety Report 25313072 (Version 1)
Quarter: 2025Q2

REPORT INFORMATION
  Report Type: Spontaneous
  Country: US (occurrence: US)
  Receive Date: 20250514
  Receipt Date: 20250514
  Transmission Date: 20250716
  Serious: No
  Sender: BIOGEN
  Company Number: US-BIOGEN-2025BI01310874

PATIENT
  Sex: Female

DRUGS (10)
  1. TECFIDERA [Suspect]
     Active Substance: DIMETHYL FUMARATE
     Indication: Multiple sclerosis
     Route: 050
  2. BACLOFEN [Concomitant]
     Active Substance: BACLOFEN
     Route: 050
  3. CYMBALTA [Concomitant]
     Active Substance: DULOXETINE HYDROCHLORIDE
     Route: 050
  4. CLONAZEPAM [Concomitant]
     Active Substance: CLONAZEPAM
     Route: 050
  5. SIMVASTATIN [Concomitant]
     Active Substance: SIMVASTATIN
     Route: 050
  6. TIZANIDINE [Concomitant]
     Active Substance: TIZANIDINE
     Route: 050
  7. LEVOTHYROXINE [Concomitant]
     Active Substance: LEVOTHYROXINE
     Route: 050
  8. METRONIDAZOLE [Concomitant]
     Active Substance: METRONIDAZOLE
     Route: 050
  9. ESTROGENS [Concomitant]
     Active Substance: ESTROGENS
     Route: 050
  10. FLUTICASONE [Concomitant]
     Active Substance: FLUTICASONE
     Route: 050

REACTIONS (1)
  - Drug ineffective [Unknown]
